FAERS Safety Report 7062641-5 (Version None)
Quarter: 2010Q4

REPORT INFORMATION
  Report Type: 
  Country: None (occurrence: None)
  Receive Date: 20101026
  Receipt Date: 20091201
  Transmission Date: 20110411
  Serious: No
  Sender: FDA-Public Use
  Company Number: US-PFIZER INC-2009284362

PATIENT
  Sex: Male
  Weight: 127 kg

DRUGS (6)
  1. LIPITOR [Suspect]
     Indication: BLOOD CHOLESTEROL INCREASED
     Dosage: 80 MG, 1X/DAY
     Route: 048
     Dates: end: 20090101
  2. LANTUS [Concomitant]
     Indication: DIABETES MELLITUS
     Dosage: 62 UNITS DAILY
     Dates: start: 20070101
  3. HUMALOG [Concomitant]
     Indication: DIABETES MELLITUS
     Dosage: 17 UNITS 3 TIMES A DAY
     Dates: start: 20040101
  4. TRIOBE [Concomitant]
     Indication: PAIN IN EXTREMITY
     Dosage: 25 MG, 2X/DAY
  5. QUINAPRIL [Concomitant]
     Indication: HYPERTENSION
     Dosage: 20 MG, 1X/DAY
     Dates: end: 20090701
  6. BENICAR [Concomitant]
     Indication: HYPERTENSION
     Dosage: 20 MG, 1X/DAY
     Dates: start: 20090701

REACTIONS (6)
  - BONE PAIN [None]
  - MUSCULOSKELETAL CHEST PAIN [None]
  - MYALGIA [None]
  - PAIN IN EXTREMITY [None]
  - VITAMIN D DECREASED [None]
  - WEIGHT DECREASED [None]
